FAERS Safety Report 8364243-7 (Version None)
Quarter: 2012Q2

REPORT INFORMATION
  Report Type: 
  Country: None (occurrence: None)
  Receive Date: 20120516
  Receipt Date: 20120509
  Transmission Date: 20120825
  Serious: Yes (Other)
  Sender: FDA-Public Use
  Company Number: PHHO2012IT006524

PATIENT

DRUGS (4)
  1. TRIPTORELIN [Suspect]
     Dosage: UNK
     Dates: start: 20090309, end: 20120423
  2. TRIPTORELIN [Suspect]
     Dosage: UNK
     Dates: start: 20120509
  3. LETROZOLE [Suspect]
     Indication: BONE LOSS
     Dosage: UNK
     Dates: start: 20090309, end: 20120423
  4. ZOMETA [Suspect]
     Indication: BONE LOSS
     Dosage: UNK
     Dates: start: 20090309, end: 20100601

REACTIONS (1)
  - HYPERTRANSAMINASAEMIA [None]
